FAERS Safety Report 14257627 (Version 1)
Quarter: 2017Q4

REPORT INFORMATION
  Report Type: Report from Study
  Country: None (occurrence: US)
  Receive Date: 20171207
  Receipt Date: 20171207
  Transmission Date: 20180321
  Serious: Yes (Hospitalization)
  Sender: FDA-Public Use
  Company Number: US-ABBVIE-17K-163-2173056-00

PATIENT
  Age: 48 Year
  Sex: Female
  Weight: 80.36 kg

DRUGS (2)
  1. AMITRIPTYLINE [Concomitant]
     Active Substance: AMITRIPTYLINE
     Indication: INSOMNIA
  2. HUMIRA [Suspect]
     Active Substance: ADALIMUMAB
     Indication: RHEUMATOID ARTHRITIS
     Route: 058
     Dates: start: 201512, end: 201703

REACTIONS (2)
  - Body mass index increased [Recovering/Resolving]
  - Haemochromatosis [Recovering/Resolving]

NARRATIVE: CASE EVENT DATE: 201610
